FAERS Safety Report 23670793 (Version 1)
Quarter: 2024Q1

REPORT INFORMATION
  Report Type: Spontaneous
  Country: US (occurrence: US)
  Receive Date: 20240326
  Receipt Date: 20240326
  Transmission Date: 20240410
  Serious: Yes (Other)
  Sender: FDA-Public Use
  Company Number: US-NOVOPROD-1194530

PATIENT
  Age: 55 Year
  Sex: Female

DRUGS (6)
  1. ESTRADIOL [Suspect]
     Active Substance: ESTRADIOL
     Dosage: 10 ?G, EVERY FIVE DAYS
     Route: 067
     Dates: start: 20240317
  2. ESTRADIOL [Suspect]
     Active Substance: ESTRADIOL
     Indication: Atrophic vulvovaginitis
     Dosage: 10 ?G, EVERY FIVE DAYS
     Route: 067
     Dates: start: 2012, end: 20240310
  3. ESTRADIOL [Concomitant]
     Active Substance: ESTRADIOL
     Indication: Atrophic vulvovaginitis
     Dosage: UNK
     Route: 062
     Dates: start: 2012, end: 20240310
  4. ESTRADIOL [Concomitant]
     Active Substance: ESTRADIOL
     Dosage: PATCH, UNKNOWN DOSE
     Route: 062
     Dates: start: 20240320
  5. PROGESTERONE [Concomitant]
     Active Substance: PROGESTERONE
     Indication: Atrophic vulvovaginitis
     Dosage: CREAM, UNKNOWN DOSE
     Route: 067
     Dates: start: 2012, end: 20240310
  6. PROGESTERONE [Concomitant]
     Active Substance: PROGESTERONE
     Dosage: CREAM, UNKNOWN DOSE
     Route: 067
     Dates: start: 20240320

REACTIONS (2)
  - Uterine leiomyoma [Not Recovered/Not Resolved]
  - Intentional product misuse [Not Recovered/Not Resolved]

NARRATIVE: CASE EVENT DATE: 20240310
